FAERS Safety Report 18323909 (Version 1)
Quarter: 2020Q3

REPORT INFORMATION
  Report Type: Spontaneous
  Country: FR (occurrence: FR)
  Receive Date: 20200929
  Receipt Date: 20200929
  Transmission Date: 20201103
  Serious: Yes (Hospitalization, Other)
  Sender: FDA-Public Use
  Company Number: FR-MYLANLABS-2020M1081182

PATIENT
  Age: 48 Year
  Sex: Male
  Weight: 70 kg

DRUGS (2)
  1. VANCOMYCINE MYLAN 1 G, POUDRE POUR SOLUTION POUR PERFUSION [Suspect]
     Active Substance: VANCOMYCIN
     Indication: DIABETIC WOUND
     Dosage: 30 MILLIGRAM/KILOGRAM, QD
     Route: 041
     Dates: start: 20200821, end: 20200831
  2. BACTRIM [Suspect]
     Active Substance: SULFAMETHOXAZOLE\TRIMETHOPRIM
     Indication: DIABETIC WOUND
     Dosage: 6 DOSAGE FORM, QD
     Route: 048
     Dates: start: 20200821, end: 20200826

REACTIONS (3)
  - Acute kidney injury [Recovering/Resolving]
  - Bicytopenia [Recovered/Resolved]
  - Drug level increased [Recovered/Resolved]

NARRATIVE: CASE EVENT DATE: 20200826
